FAERS Safety Report 4289580-7 (Version None)
Quarter: 2004Q1

REPORT INFORMATION
  Report Type: 
  Country: None (occurrence: None)
  Receive Date: 20040206
  Receipt Date: 20031118
  Transmission Date: 20041129
  Serious: Yes (Other)
  Sender: FDA-Public Use
  Company Number: USA-2002-0003063

PATIENT
  Age: 42 Year
  Sex: Male
  Weight: 86.2 kg

DRUGS (13)
  1. OXYCONTIN [Suspect]
     Indication: PAIN
     Dosage: SEE IMAGE
     Route: 048
     Dates: start: 19970101
  2. PEPCID [Concomitant]
  3. SENNOSIDES FAMILY (SENNOSIDE A+B) TABLET [Concomitant]
  4. AMBIEN [Concomitant]
  5. FOLIC ACID [Concomitant]
  6. MULTIVITAMINS (PANTHENOL, NICOTINAMIDE, RIBOFLAVIN, RETINOL, THIAMINE [Concomitant]
  7. LIBRIUM (CHLORDIAZEPOXIDE HYDROCHLORIDE) TABLET [Concomitant]
  8. INAPSINE [Concomitant]
  9. MILK OF MAGNESIA (MAGNESIUM HYDROXIDE) [Concomitant]
  10. PROCRIT (ERYTHROPOIETIN) [Concomitant]
  11. FERROUS SULFATE TAB [Concomitant]
  12. PERCOCET [Concomitant]
  13. VITAMIN C (ASCORBIC ACID) [Concomitant]

REACTIONS (17)
  - ARTHRALGIA [None]
  - BONE CYST [None]
  - COAGULOPATHY [None]
  - DRUG DEPENDENCE [None]
  - DRUG HYPERSENSITIVITY [None]
  - HEPATITIS C [None]
  - IRON DEFICIENCY ANAEMIA [None]
  - MICROCYTOSIS [None]
  - MUSCLE CRAMP [None]
  - PAIN [None]
  - PAIN IN EXTREMITY [None]
  - PANCYTOPENIA [None]
  - PRURITUS [None]
  - RASH [None]
  - SKIN LESION [None]
  - THROMBOCYTOPENIA [None]
  - WEIGHT DECREASED [None]
